FAERS Safety Report 6262050 (Version 5)
Quarter: 2012Q4

REPORT INFORMATION
  Report Type: 
  Country: US (occurrence: US)
  Receive Date: 20070315
  Receipt Date: 20121126
  Transmission Date: 20130627
  Serious: Yes (Other)
  Sender: FDA-Public Use
  Company Number: PHEH2007US02639

PATIENT
  Sex: Male

DRUGS (7)
  1. AREDIA [Suspect]
     Indication: MULTIPLE MYELOMA
     Dosage: 90 mg monthly
     Dates: start: 20020926
  2. AREDIA [Suspect]
     Dosage: 90 mg monthly
     Dates: start: 20021219, end: 20060322
  3. COUMADIN [Concomitant]
     Indication: THROMBOSIS PROPHYLAXIS
     Dosage: UNK UKN, UNK
  4. DECADRON #1 [Concomitant]
     Dosage: UNK UKN, UNK
     Dates: end: 200302
  5. PREDNISONE [Concomitant]
     Dosage: UNK UKN, UNK
  6. CHEMOTHERAPEUTICS [Concomitant]
     Indication: NEOPLASM MALIGNANT
     Dosage: UNK UKN, UNK
  7. VITAMIN B6 [Concomitant]
     Dosage: UNK UKN, UNK

REACTIONS (16)
  - Osteonecrosis of jaw [Recovering/Resolving]
  - Bone disorder [Unknown]
  - Jaw disorder [Unknown]
  - Primary sequestrum [Recovering/Resolving]
  - Gingival recession [Recovering/Resolving]
  - Oral infection [Recovered/Resolved]
  - Loose tooth [Unknown]
  - Gingival bleeding [Recovering/Resolving]
  - Wound secretion [Unknown]
  - Gingival infection [Recovering/Resolving]
  - Osteomyelitis [Recovering/Resolving]
  - Oral disorder [Recovering/Resolving]
  - Erythema [Recovering/Resolving]
  - Gingival swelling [Recovering/Resolving]
  - Oral pain [Recovering/Resolving]
  - Dental alveolar anomaly [Unknown]
